FAERS Safety Report 20680468 (Version 1)
Quarter: 2022Q2

REPORT INFORMATION
  Report Type: Spontaneous
  Country: US (occurrence: None)
  Receive Date: 20220406
  Receipt Date: 20220406
  Transmission Date: 20220720
  Serious: Yes (Other)
  Sender: FDA-Public Use
  Company Number: 2022A137109

PATIENT
  Age: 64 Year
  Sex: Female
  Weight: 106.6 kg

DRUGS (13)
  1. FARXIGA [Suspect]
     Active Substance: DAPAGLIFLOZIN PROPANEDIOL
     Route: 048
  2. KORLYM [Suspect]
     Active Substance: MIFEPRISTONE
     Indication: Cushing^s syndrome
     Route: 048
     Dates: start: 20210918
  3. KORLYM [Suspect]
     Active Substance: MIFEPRISTONE
     Indication: Cushing^s syndrome
     Route: 048
     Dates: start: 20210905, end: 20210917
  4. OMEPRAZOLE [Suspect]
     Active Substance: OMEPRAZOLE
     Route: 048
  5. ATORVASTATIN [Concomitant]
     Active Substance: ATORVASTATIN
  6. ASPIRIN [Concomitant]
     Active Substance: ASPIRIN
  7. HYDROCHLOROTHIAZIDE [Concomitant]
     Active Substance: HYDROCHLOROTHIAZIDE
  8. LISINOPRIL [Concomitant]
     Active Substance: LISINOPRIL
  9. METFORMIN [Concomitant]
     Active Substance: METFORMIN HYDROCHLORIDE
  10. SERTRALINE [Concomitant]
     Active Substance: SERTRALINE HYDROCHLORIDE
  11. IRON SUPPLIMENT [Concomitant]
  12. COVID BOOSTER SHOT [Concomitant]
  13. PEPCID [Concomitant]
     Active Substance: FAMOTIDINE

REACTIONS (13)
  - Adrenal mass [Unknown]
  - Oesophageal ulcer [Unknown]
  - Urinary tract infection [Unknown]
  - Intervertebral disc protrusion [Unknown]
  - Dysgeusia [Unknown]
  - Muscle spasms [Recovered/Resolved]
  - Pain in extremity [Recovered/Resolved]
  - Nausea [Recovered/Resolved]
  - Abdominal discomfort [Unknown]
  - Vomiting [Unknown]
  - Gallbladder enlargement [Unknown]
  - Cholelithiasis [Unknown]
  - Arthralgia [Unknown]
